FAERS Safety Report 7428854-5 (Version None)
Quarter: 2011Q2

REPORT INFORMATION
  Report Type: 
  Country: None (occurrence: None)
  Receive Date: 20110421
  Receipt Date: 20110408
  Transmission Date: 20111010
  Serious: Yes (Other)
  Sender: FDA-Public Use
  Company Number: JP-JNJFOC-20110408456

PATIENT
  Age: 11 Year
  Sex: Female

DRUGS (2)
  1. ZYRTEC [Suspect]
     Indication: ATOPY
     Route: 048
  2. ZYRTEC [Suspect]
     Indication: ASTHMA
     Route: 048

REACTIONS (1)
  - ANAPHYLACTIC REACTION [None]
